FAERS Safety Report 9584463 (Version 1)
Quarter: 2013Q4

REPORT INFORMATION
  Report Type: Spontaneous
  Country: US (occurrence: US)
  Receive Date: 20131002
  Receipt Date: 20131002
  Transmission Date: 20140711
  Serious: No
  Sender: FDA-Public Use
  Company Number: US-AMGEN-USASP2013053273

PATIENT
  Age: 40 Year
  Sex: Female

DRUGS (6)
  1. ENBREL [Suspect]
     Indication: PRODUCT USED FOR UNKNOWN INDICATION
     Dosage: 50 MG, EVERY WEEK
     Route: 058
  2. TOPAMAX [Concomitant]
     Dosage: 25 MG, UNK
  3. AMBIEN [Concomitant]
     Dosage: 5 MG, UNK
  4. VITAMIN D3 [Concomitant]
     Dosage: 10000 UNIT, UNK
  5. VITAMIN B COMPLEX [Concomitant]
     Dosage: UNK
  6. PREDNISONE [Concomitant]
     Dosage: 5 MG, UNK

REACTIONS (3)
  - Injection site erythema [Unknown]
  - Injection site swelling [Unknown]
  - Injection site warmth [Unknown]
